FAERS Safety Report 4289944-1 (Version None)
Quarter: 2004Q1

REPORT INFORMATION
  Report Type: 
  Country: None (occurrence: None)
  Receive Date: 20040209
  Receipt Date: 20031224
  Transmission Date: 20041129
  Serious: Yes (Life-Threatening)
  Sender: FDA-Public Use
  Company Number: PHBS2003JP14466

PATIENT
  Age: 52 Year
  Sex: Male
  Weight: 70 kg

DRUGS (7)
  1. VOLTAREN [Suspect]
     Indication: PYREXIA
     Dosage: 50 MG/DAY
     Route: 048
     Dates: start: 20031125, end: 20031126
  2. ANTIBIOTICS [Concomitant]
     Indication: THERMAL BURN
  3. FIRSTCIN [Suspect]
     Dosage: 1 G/BID
     Dates: start: 20031125, end: 20031126
  4. IODINE [Concomitant]
  5. HYAMINE [Concomitant]
  6. CHLOMY-P [Concomitant]
  7. DERMOVATE [Concomitant]

REACTIONS (6)
  - ERYTHEMA MULTIFORME [None]
  - GLOMERULONEPHRITIS RAPIDLY PROGRESSIVE [None]
  - HAEMODIALYSIS [None]
  - RASH [None]
  - RENAL FAILURE ACUTE [None]
  - SHOCK [None]
